FAERS Safety Report 10203544 (Version 2)
Quarter: 2014Q2

REPORT INFORMATION
  Report Type: Spontaneous
  Country: PL (occurrence: None)
  Receive Date: 20140523
  Receipt Date: 20140603
  Transmission Date: 20141212
  Serious: Yes (Other)
  Sender: FDA-Public Use
  Company Number: 2014000165

PATIENT
  Age: 51 Year
  Sex: Female
  Weight: 80 kg

DRUGS (5)
  1. ACEON (PERINDOPRIL ERBUMINE) TABLET [Suspect]
     Indication: HYPERTENSION
     Route: 048
     Dates: start: 2004, end: 201312
  2. PRESTARIUM [Suspect]
     Indication: HYPERTENSION
     Route: 048
     Dates: start: 201312, end: 20140311
  3. CLIMEA FORTE (CLIMEA FORTE) [Concomitant]
  4. AMLODIPINE (AMLODIPINE) [Concomitant]
  5. CETIRIZINE HYDROCHLORIDE (CETIRIZINE HYDROCHLORIDE) [Concomitant]

REACTIONS (14)
  - Drug ineffective [None]
  - Urticaria [None]
  - Oedema peripheral [None]
  - Overdose [None]
  - Blood pressure decreased [None]
  - Palpitations [None]
  - Stupor [None]
  - Chest pain [None]
  - Laryngeal oedema [None]
  - Lip oedema [None]
  - Urticaria [None]
  - Blood pressure increased [None]
  - Oedema peripheral [None]
  - Angioedema [None]
